FAERS Safety Report 8120838-7 (Version None)
Quarter: 2012Q1

REPORT INFORMATION
  Report Type: 
  Country: None (occurrence: None)
  Receive Date: 20120208
  Receipt Date: 20120127
  Transmission Date: 20120608
  Serious: Yes (Life-Threatening, Hospitalization)
  Sender: FDA-Public Use
  Company Number: FR-AMGEN-FRASP2012007063

PATIENT
  Age: 68 Year
  Sex: Female

DRUGS (9)
  1. BISOPROLOL BIOGARAN [Concomitant]
     Dosage: UNK
  2. ARAVA [Suspect]
     Indication: RHEUMATOID ARTHRITIS
     Dosage: 10 MG, 1X/DAY
     Route: 048
     Dates: start: 20080101, end: 20110925
  3. LASIX [Concomitant]
     Dosage: UNK
  4. LEVOTHYROXINE SODIUM [Concomitant]
     Dosage: UNK
  5. TRAMADOL BIOGARAN [Concomitant]
     Dosage: UNK
  6. ENBREL [Suspect]
     Indication: RHEUMATOID ARTHRITIS
     Dosage: 1 DF, WEEKLY
     Route: 058
     Dates: start: 20080101, end: 20110927
  7. PREDNISONE TAB [Suspect]
     Indication: RHEUMATOID ARTHRITIS
     Dosage: 13 MG, 1X/DAY
     Route: 048
     Dates: start: 20080101, end: 20110927
  8. DUOPLAVIN [Suspect]
     Dosage: UNK
  9. EZETIMIBE [Concomitant]
     Dosage: UNK

REACTIONS (5)
  - IMPAIRED HEALING [None]
  - PERITONEAL ABSCESS [None]
  - INFECTIOUS PERITONITIS [None]
  - MALNUTRITION [None]
  - DIVERTICULITIS [None]
